FAERS Safety Report 16209295 (Version 3)
Quarter: 2019Q2

REPORT INFORMATION
  Report Type: Report from Study
  Country: None (occurrence: US)
  Receive Date: 20190417
  Receipt Date: 20190612
  Transmission Date: 20190711
  Serious: Yes (Hospitalization, Other)
  Sender: FDA-Public Use
  Company Number: US-ABBVIE-19S-163-2744991-00

PATIENT
  Age: 69 Year
  Sex: Male

DRUGS (1)
  1. CREON [Suspect]
     Active Substance: PANCRELIPASE AMYLASE\PANCRELIPASE LIPASE\PANCRELIPASE PROTEASE
     Indication: PANCREATIC FAILURE
     Dosage: 1 CAPSULE WITH MEALS AND SNACK
     Route: 048
     Dates: start: 201804

REACTIONS (6)
  - Pancreatic neoplasm [Unknown]
  - Pancreatolithiasis [Recovered/Resolved]
  - Intraductal papillary-mucinous carcinoma of pancreas [Recovered/Resolved]
  - Coronary artery disease [Unknown]
  - Nausea [Unknown]
  - Faeces soft [Unknown]

NARRATIVE: CASE EVENT DATE: 201804
